FAERS Safety Report 7636813-2 (Version None)
Quarter: 2011Q3

REPORT INFORMATION
  Report Type: 
  Country: None (occurrence: None)
  Receive Date: 20110722
  Receipt Date: 20110722
  Transmission Date: 20111222
  Serious: Yes (Hospitalization, Disabling)
  Sender: FDA-Public Use
  Company Number: None

PATIENT
  Sex: Female
  Weight: 54.4316 kg

DRUGS (2)
  1. RISPERDAL [Suspect]
     Dosage: 37.5 MG ONCE WEEK
     Dates: start: 20040101, end: 20080101
  2. RISPERDAL [Suspect]
     Dosage: 37.5 MG ONCE WEEK
     Dates: start: 20080101, end: 20100101

REACTIONS (11)
  - ANXIETY [None]
  - HYPOAESTHESIA [None]
  - FEELING JITTERY [None]
  - ABDOMINAL PAIN [None]
  - MUSCLE TWITCHING [None]
  - PAIN [None]
  - DYSPNOEA [None]
  - MUSCULOSKELETAL STIFFNESS [None]
  - ATRIAL TACHYCARDIA [None]
  - CONFUSIONAL STATE [None]
  - RESTLESSNESS [None]
